FAERS Safety Report 5957159-4 (Version None)
Quarter: 2008Q4

REPORT INFORMATION
  Report Type: 
  Country: None (occurrence: None)
  Receive Date: 20081118
  Receipt Date: 20081106
  Transmission Date: 20090506
  Serious: Yes (Hospitalization)
  Sender: FDA-Public Use
  Company Number: DE-PFIZER INC-2008095004

PATIENT
  Age: 58 Year
  Sex: Female

DRUGS (2)
  1. VFEND [Suspect]
     Indication: CANDIDIASIS
  2. ANTINEOPLASTIC AGENTS [Concomitant]

REACTIONS (1)
  - LEUKOENCEPHALOPATHY [None]
